FAERS Safety Report 7177414-2 (Version None)
Quarter: 2010Q4

REPORT INFORMATION
  Report Type: 
  Country: None (occurrence: None)
  Receive Date: 20101220
  Receipt Date: 20101210
  Transmission Date: 20110411
  Serious: Yes (Hospitalization)
  Sender: FDA-Public Use
  Company Number: US-ELI_LILLY_AND_COMPANY-US200909004421

PATIENT
  Sex: Female

DRUGS (3)
  1. FORTEO [Suspect]
     Indication: OSTEOPOROSIS
     Dosage: 20 UG, DAILY (1/D)
     Dates: start: 20090615
  2. FORTEO [Suspect]
     Dosage: UNK, UNK
     Dates: start: 20090101
  3. WATER PILLS [Concomitant]
     Dosage: 25 MG, WEEKLY (1/W)

REACTIONS (3)
  - HOSPITALISATION [None]
  - MUSCLE SPASMS [None]
  - POLLAKIURIA [None]
